FAERS Safety Report 5435308-4 (Version None)
Quarter: 2007Q3

REPORT INFORMATION
  Report Type: 
  Country: None (occurrence: None)
  Receive Date: 20070831
  Receipt Date: 20070816
  Transmission Date: 20080115
  Serious: No
  Sender: FDA-Public Use
  Company Number: A0670614A

PATIENT

DRUGS (2)
  1. ALLI [Suspect]
  2. SPIRONOLACTONE [Concomitant]

REACTIONS (3)
  - HEADACHE [None]
  - MIGRAINE [None]
  - NAUSEA [None]
